FAERS Safety Report 24032091 (Version 1)
Quarter: 2024Q2

REPORT INFORMATION
  Report Type: Spontaneous
  Country: US (occurrence: US)
  Receive Date: 20240630
  Receipt Date: 20240630
  Transmission Date: 20240716
  Serious: Yes (Death, Hospitalization, Other)
  Sender: FDA-Public Use
  Company Number: US-DRL-USA-LIT/USA/24/0009232

PATIENT
  Age: 60 Year
  Sex: Female

DRUGS (9)
  1. PROPOFOL [Suspect]
     Active Substance: PROPOFOL
     Indication: New onset refractory status epilepticus
  2. VALPROIC ACID [Suspect]
     Active Substance: VALPROIC ACID
     Indication: New onset refractory status epilepticus
  3. LACOSAMIDE [Suspect]
     Active Substance: LACOSAMIDE
     Indication: New onset refractory status epilepticus
  4. BRIVARACETAM [Concomitant]
     Active Substance: BRIVARACETAM
     Indication: New onset refractory status epilepticus
  5. FOSPHENYTOIN [Concomitant]
     Active Substance: FOSPHENYTOIN
     Indication: New onset refractory status epilepticus
  6. PHENOBARBITAL [Concomitant]
     Active Substance: PHENOBARBITAL
     Indication: New onset refractory status epilepticus
  7. MIDAZOLAM [Concomitant]
     Active Substance: MIDAZOLAM
     Indication: New onset refractory status epilepticus
  8. CENOBAMATE [Concomitant]
     Active Substance: CENOBAMATE
     Indication: New onset refractory status epilepticus
  9. CLOBAZAM [Concomitant]
     Active Substance: CLOBAZAM
     Indication: New onset refractory status epilepticus

REACTIONS (2)
  - Cardiac arrest [Fatal]
  - Drug ineffective for unapproved indication [Unknown]
